FAERS Safety Report 24878324 (Version 1)
Quarter: 2025Q1

REPORT INFORMATION
  Report Type: Spontaneous
  Country: US (occurrence: None)
  Receive Date: 20250123
  Receipt Date: 20250123
  Transmission Date: 20250409
  Serious: Yes (Other)
  Sender: FDA-CTU
  Company Number: None

PATIENT
  Sex: Male

DRUGS (3)
  1. SPRYCEL [Suspect]
     Active Substance: DASATINIB
     Indication: Chronic myeloid leukaemia
     Dosage: FREQUENCY : DAILY;?
     Route: 048
     Dates: start: 20240727
  2. SPRYCEL [Suspect]
     Active Substance: DASATINIB
     Indication: Philadelphia chromosome positive
  3. DASATINIB [Concomitant]
     Active Substance: DASATINIB

REACTIONS (1)
  - Skin cancer [None]
